FAERS Safety Report 16550704 (Version 2)
Quarter: 2019Q3

REPORT INFORMATION
  Report Type: Spontaneous
  Country: US (occurrence: US)
  Receive Date: 20190710
  Receipt Date: 20190722
  Transmission Date: 20191004
  Serious: Yes (Life-Threatening, Hospitalization, Other)
  Sender: FDA-Public Use
  Company Number: US-AUROBINDO-AUR-APL-2019-038212

PATIENT

DRUGS (2)
  1. DIVALPROEX [Suspect]
     Active Substance: DIVALPROEX SODIUM
     Indication: MAJOR DEPRESSION
     Dosage: 500 MILLIGRAM, DAILY
     Route: 065
  2. SERTRALINE [Concomitant]
     Active Substance: SERTRALINE HYDROCHLORIDE
     Indication: MAJOR DEPRESSION
     Dosage: UNK
     Route: 065

REACTIONS (11)
  - Hepatotoxicity [Recovering/Resolving]
  - Condition aggravated [Recovered/Resolved]
  - Rash morbilliform [Unknown]
  - Hypotension [Unknown]
  - Acute hepatic failure [Recovering/Resolving]
  - Eosinophilia [Unknown]
  - Delirium [Recovered/Resolved]
  - Tachycardia [Unknown]
  - Off label use [Unknown]
  - Hepatic encephalopathy [Recovered/Resolved]
  - Liver injury [Recovering/Resolving]
